FAERS Safety Report 17462923 (Version 2)
Quarter: 2020Q1

REPORT INFORMATION
  Report Type: Spontaneous
  Country: US (occurrence: US)
  Receive Date: 20200226
  Receipt Date: 20200320
  Transmission Date: 20200409
  Serious: Yes (Death)
  Sender: FDA-Public Use
  Company Number: US-BIOGEN-2020BI00841731

PATIENT
  Age: 65 Year

DRUGS (3)
  1. AMPYRA [Suspect]
     Active Substance: DALFAMPRIDINE
     Indication: PRODUCT USED FOR UNKNOWN INDICATION
     Route: 065
  2. ATENOLOL. [Concomitant]
     Active Substance: ATENOLOL
     Indication: PRODUCT USED FOR UNKNOWN INDICATION
     Route: 065
  3. TECFIDERA [Suspect]
     Active Substance: DIMETHYL FUMARATE
     Indication: MULTIPLE SCLEROSIS
     Route: 048

REACTIONS (8)
  - Hypoaesthesia [Unknown]
  - Condition aggravated [Unknown]
  - Hyperaesthesia [Unknown]
  - Central nervous system lesion [Unknown]
  - Hypothermia [Fatal]
  - Urinary incontinence [Not Recovered/Not Resolved]
  - Muscular weakness [Unknown]
  - Gait spastic [Unknown]

NARRATIVE: CASE EVENT DATE: 20171018
